FAERS Safety Report 15004865 (Version 1)
Quarter: 2018Q2

REPORT INFORMATION
  Report Type: Spontaneous
  Country: GB (occurrence: GB)
  Receive Date: 20180613
  Receipt Date: 20180613
  Transmission Date: 20180711
  Serious: Yes (Other)
  Sender: FDA-Public Use
  Company Number: GB-BRISTOL-MYERS SQUIBB COMPANY-BMS-2018-052639

PATIENT
  Age: 60 Year
  Sex: Female
  Weight: 84 kg

DRUGS (2)
  1. PARACETAMOL [Concomitant]
     Active Substance: ACETAMINOPHEN
     Indication: PAIN
     Dosage: 1 G, QID
     Route: 048
  2. APIXABAN [Suspect]
     Active Substance: APIXABAN
     Indication: THROMBOSIS PROPHYLAXIS
     Dosage: 5 MG, INTERVAL OF 1 DAY
     Route: 048
     Dates: start: 20180429, end: 20180515

REACTIONS (4)
  - Hypersensitivity [Recovering/Resolving]
  - Swelling face [Recovering/Resolving]
  - Eye swelling [Recovering/Resolving]
  - Lip swelling [Recovering/Resolving]

NARRATIVE: CASE EVENT DATE: 20180515
